FAERS Safety Report 20500036 (Version 1)
Quarter: 2022Q1

REPORT INFORMATION
  Report Type: Spontaneous
  Country: US (occurrence: US)
  Receive Date: 20220222
  Receipt Date: 20220222
  Transmission Date: 20220424
  Serious: No
  Sender: FDA-Public Use
  Company Number: US-UCBSA-2021052371

PATIENT
  Age: 79 Year
  Sex: Female

DRUGS (5)
  1. LEVETIRACETAM [Suspect]
     Active Substance: LEVETIRACETAM
     Indication: Myoclonus
     Dosage: 750 MILLIGRAM, 2X/DAY (BID)
  2. LEVETIRACETAM [Suspect]
     Active Substance: LEVETIRACETAM
     Indication: Off label use
  3. CLONAZEPAM [Concomitant]
     Active Substance: CLONAZEPAM
     Indication: Myoclonus
     Dosage: 0.5 MILLIGRAMS PER DAY
  4. PRIMIDONE [Concomitant]
     Active Substance: PRIMIDONE
     Indication: Myoclonus
     Dosage: 50 MILLIGRAMS PER DAY
  5. VALPROIC ACID [Concomitant]
     Active Substance: VALPROIC ACID
     Indication: Myoclonus
     Dosage: 2000 MILLIGRAMS PER DAY

REACTIONS (2)
  - Off label use [Unknown]
  - Therapeutic product effect incomplete [Unknown]
